FAERS Safety Report 10082750 (Version 1)
Quarter: 2014Q2

REPORT INFORMATION
  Report Type: Spontaneous
  Country: KW (occurrence: KW)
  Receive Date: 20140416
  Receipt Date: 20140416
  Transmission Date: 20141212
  Serious: Yes (Other)
  Sender: FDA-Public Use
  Company Number: PHHY2014KW042372

PATIENT
  Age: 18 Year
  Sex: Male

DRUGS (5)
  1. CICLOSPORIN [Suspect]
     Indication: IMMUNOSUPPRESSION
  2. MYCOPHENOLATE MOFETIL [Suspect]
     Indication: IMMUNOSUPPRESSION
  3. THYMOGLOBULIN [Concomitant]
  4. CORTICOSTEROIDS [Concomitant]
  5. TACROLIMUS [Concomitant]

REACTIONS (7)
  - Toxicity to various agents [Unknown]
  - Urinary tract infection [Unknown]
  - Intracranial pressure increased [Unknown]
  - Diarrhoea [Unknown]
  - Dyspnoea [Unknown]
  - Hypoxia [Unknown]
  - Chylothorax [Unknown]
